FAERS Safety Report 4604829-6 (Version None)
Quarter: 2005Q2

REPORT INFORMATION
  Report Type: 
  Country: None (occurrence: None)
  Receive Date: 20050224
  Receipt Date: 20050119
  Transmission Date: 20051028
  Serious: Yes (Death)
  Sender: FDA-Public Use
  Company Number: 05P-163-0288057-00

PATIENT
  Age: 68 Year
  Sex: Male

DRUGS (2)
  1. DEPAKOTE ER [Suspect]
     Indication: ABNORMAL BEHAVIOUR
     Dosage: 500 MG, 2 IN 1 D, PER ORAL
     Route: 048
     Dates: end: 20050101
  2. GENERIC VALPROIC ACID (DEPAKENE) (VALPROIC ACID) (VALPROIC ACID) [Suspect]
     Indication: ABNORMAL BEHAVIOUR
     Dosage: 1500 MG, 1 IN 1 D
     Dates: end: 20050101

REACTIONS (2)
  - ACCIDENTAL OVERDOSE [None]
  - DRUG LEVEL INCREASED [None]
